FAERS Safety Report 18845433 (Version 1)
Quarter: 2021Q1

REPORT INFORMATION
  Report Type: Spontaneous
  Country: US (occurrence: US)
  Receive Date: 20210203
  Receipt Date: 20210203
  Transmission Date: 20210419
  Serious: No
  Sender: FDA-Public Use
  Company Number: None

PATIENT
  Age: 66 Year
  Sex: Female
  Weight: 54.43 kg

DRUGS (6)
  1. VITAMIN C [Concomitant]
     Active Substance: ASCORBIC ACID
  2. ZINC. [Concomitant]
     Active Substance: ZINC
  3. FOSAMAX [Concomitant]
     Active Substance: ALENDRONATE SODIUM
  4. CALCIUM [Concomitant]
     Active Substance: CALCIUM
  5. DEXTENZA [Suspect]
     Active Substance: DEXAMETHASONE
     Indication: CATARACT OPERATION
     Route: 047
     Dates: start: 20201102
  6. VITAMIN D3 [Concomitant]
     Active Substance: CHOLECALCIFEROL

REACTIONS (8)
  - Photophobia [None]
  - Vitreous floaters [None]
  - Lacrimation increased [None]
  - Visual impairment [None]
  - Therapeutic product ineffective [None]
  - Blindness [None]
  - Drug delivery system issue [None]
  - Corneal oedema [None]

NARRATIVE: CASE EVENT DATE: 20201102
